FAERS Safety Report 23384013 (Version 7)
Quarter: 2025Q3

REPORT INFORMATION
  Report Type: Report from Study
  Country: US (occurrence: US)
  Receive Date: 20240109
  Receipt Date: 20250820
  Transmission Date: 20251021
  Serious: Yes (Other)
  Sender: UCB
  Company Number: US-UCBSA-2024000706

PATIENT
  Age: 39 Year
  Sex: Female
  Weight: 86.12 kg

DRUGS (4)
  1. MIDAZOLAM [Suspect]
     Active Substance: MIDAZOLAM
     Indication: Epilepsy
     Route: 045
  2. MIDAZOLAM [Suspect]
     Active Substance: MIDAZOLAM
     Route: 045
  3. MIDAZOLAM [Suspect]
     Active Substance: MIDAZOLAM
  4. FYCOMPA [Concomitant]
     Active Substance: PERAMPANEL
     Indication: Product used for unknown indication

REACTIONS (9)
  - Seizure [Unknown]
  - Seizure cluster [Recovered/Resolved]
  - Headache [Unknown]
  - Anxiety [Unknown]
  - Product availability issue [Unknown]
  - Device issue [Unknown]
  - Drug delivery system issue [Unknown]
  - Therapy interrupted [Unknown]
  - Product packaging issue [Unknown]

NARRATIVE: CASE EVENT DATE: 20231201
